FAERS Safety Report 13608946 (Version 1)
Quarter: 2017Q2

REPORT INFORMATION
  Report Type: Spontaneous
  Country: BE (occurrence: BE)
  Receive Date: 20170602
  Receipt Date: 20170602
  Transmission Date: 20170830
  Serious: Yes (Life-Threatening, Other)
  Sender: FDA-Public Use
  Company Number: BE-BAYER-2017-102976

PATIENT
  Age: 52 Year
  Sex: Female
  Weight: 60 kg

DRUGS (1)
  1. MIRENA [Suspect]
     Active Substance: LEVONORGESTREL
     Dosage: 20 MCG/24HR, CONT
     Route: 015
     Dates: start: 2010

REACTIONS (6)
  - Breast cancer [None]
  - Fatigue [None]
  - Device use issue [None]
  - Disturbance in attention [None]
  - Invasive lobular breast carcinoma [None]
  - Myalgia [None]

NARRATIVE: CASE EVENT DATE: 2010
